FAERS Safety Report 9415637 (Version 1)
Quarter: 2013Q3

REPORT INFORMATION
  Report Type: Spontaneous
  Country: JP (occurrence: JP)
  Receive Date: 20130723
  Receipt Date: 20130723
  Transmission Date: 20140515
  Serious: Yes (Other)
  Sender: FDA-Public Use
  Company Number: PHHY2013JP077601

PATIENT
  Age: 69 Year
  Sex: Male

DRUGS (2)
  1. PREDNISOLONE [Suspect]
     Indication: DRUG REACTION WITH EOSINOPHILIA AND SYSTEMIC SYMPTOMS
     Dosage: 60 MG, QD
  2. PREDNISOLONE [Suspect]
     Dosage: 40 MG, QD

REACTIONS (3)
  - Encephalitis [Unknown]
  - Inappropriate antidiuretic hormone secretion [Unknown]
  - Human herpesvirus 6 infection [Unknown]
